FAERS Safety Report 19731006 (Version 1)
Quarter: 2021Q3

REPORT INFORMATION
  Report Type: Report from Study
  Country: US (occurrence: US)
  Receive Date: 20210820
  Receipt Date: 20210820
  Transmission Date: 20211014
  Serious: Yes (Hospitalization, Disabling, Other)
  Sender: FDA-Public Use
  Company Number: US-SA-2021SA270790

PATIENT
  Age: 74 Year
  Sex: Female

DRUGS (1)
  1. TERIFLUNOMIDE. [Suspect]
     Active Substance: TERIFLUNOMIDE
     Indication: MULTIPLE SCLEROSIS
     Dosage: 14 MG, QD
     Route: 048
     Dates: start: 20160803

REACTIONS (6)
  - Eye disorder [Not Recovered/Not Resolved]
  - Cataract [Not Recovered/Not Resolved]
  - Hip arthroplasty [Not Recovered/Not Resolved]
  - Visual impairment [Not Recovered/Not Resolved]
  - Impaired driving ability [Unknown]
  - Throat clearing [Unknown]

NARRATIVE: CASE EVENT DATE: 20210302
